FAERS Safety Report 24023223 (Version 3)
Quarter: 2024Q3

REPORT INFORMATION
  Report Type: Report from Study
  Country: RS (occurrence: RS)
  Receive Date: 20240627
  Receipt Date: 20240710
  Transmission Date: 20241017
  Serious: No
  Sender: ROCHE
  Company Number: RS-ROCHE-3486602

PATIENT
  Age: 61 Year
  Sex: Female
  Weight: 73.0 kg

DRUGS (11)
  1. ALECTINIB [Suspect]
     Active Substance: ALECTINIB
     Indication: Lung cancer metastatic
     Route: 048
     Dates: start: 20210713
  2. ALECTINIB [Suspect]
     Active Substance: ALECTINIB
     Route: 048
     Dates: start: 20220704
  3. BARIOS [Concomitant]
     Indication: Hypertension
     Route: 048
  4. YANIDA [Concomitant]
     Indication: Hypertension
     Route: 048
  5. MOXONIDINE [Concomitant]
     Active Substance: MOXONIDINE
     Indication: Hypertension
     Route: 048
  6. TRIMETAZIDINE DIHYDROCHLORIDE [Concomitant]
     Active Substance: TRIMETAZIDINE DIHYDROCHLORIDE
     Indication: Angina pectoris
     Route: 048
  7. TORSEMIDE [Concomitant]
     Active Substance: TORSEMIDE
     Indication: Hypertension
     Dosage: FREQUENCY TEXT:EVERY OTHER DAY
     Route: 048
  8. FOLAN [FOLIC ACID] [Concomitant]
     Indication: Anaemia
     Route: 048
     Dates: start: 20211112
  9. PANTOPRAZOLE SODIUM [Concomitant]
     Active Substance: PANTOPRAZOLE SODIUM
     Route: 048
     Dates: start: 20230429, end: 20230513
  10. ACETAMINOPHEN [Concomitant]
     Active Substance: ACETAMINOPHEN
     Indication: Cancer pain
     Dosage: PRN
     Route: 048
     Dates: start: 20230526, end: 20230721
  11. RAPTEN DUO [Concomitant]
     Indication: Cancer pain
     Dosage: PRN
     Route: 048
     Dates: end: 20230721

REACTIONS (1)
  - Leukopenia [Recovered/Resolved]

NARRATIVE: CASE EVENT DATE: 20230427
